FAERS Safety Report 7773473-4 (Version None)
Quarter: 2011Q3

REPORT INFORMATION
  Report Type: 
  Country: None (occurrence: None)
  Receive Date: 20110922
  Receipt Date: 20110913
  Transmission Date: 20111222
  Serious: Yes (Hospitalization, Disabling)
  Sender: FDA-Public Use
  Company Number: JP-ASTRAZENECA-2011SE51005

PATIENT
  Sex: Female

DRUGS (3)
  1. CANDESARTAN CILEXETIL [Suspect]
     Indication: HYPERTENSION
     Route: 048
     Dates: start: 20090417, end: 20110716
  2. PRAEVENT LOGES - GREEN TEA [Interacting]
     Indication: PROPHYLAXIS
     Dosage: TWO TIMES A DAY
     Route: 048
     Dates: start: 20110506, end: 20110716
  3. LEVOTHYROXINE SODIUM [Concomitant]
     Route: 048

REACTIONS (5)
  - DRUG INTERACTION [None]
  - HEPATIC FAILURE [None]
  - LIVER FUNCTION TEST ABNORMAL [None]
  - HEPATITIS [None]
  - HEPATOCELLULAR INJURY [None]
